FAERS Safety Report 8810630 (Version 1)
Quarter: 2012Q4

REPORT INFORMATION
  Report Type: Spontaneous
  Country: US (occurrence: None)
  Receive Date: 20120924
  Receipt Date: 20120924
  Transmission Date: 20130627
  Serious: Yes (Hospitalization)
  Sender: FDA-Public Use
  Company Number: None

PATIENT
  Age: 48 Year
  Sex: Male
  Weight: 52.4 kg

DRUGS (10)
  1. PAZOPANIB [Suspect]
     Indication: RENAL CELL CARCINOMA
     Route: 048
     Dates: start: 20120816
  2. FISH OIL [Concomitant]
  3. AMLODIPINE [Concomitant]
  4. DOXERCALCIFEROL (HECTOROL) [Concomitant]
  5. FLUTICASONE (FLONASE) SPRAY [Concomitant]
  6. GUAIFENESIN (MUCINEX) [Concomitant]
  7. HYDRALAZINE [Concomitant]
  8. METOPROLOL TARTRATE [Concomitant]
  9. OMEPRAZOLE (PRILOSEC) [Concomitant]
  10. SEVELAMER CARBONATE (RENVELA) [Concomitant]

REACTIONS (1)
  - Hyperkalaemia [None]
